FAERS Safety Report 18716687 (Version 1)
Quarter: 2021Q1

REPORT INFORMATION
  Report Type: Spontaneous
  Country: US (occurrence: US)
  Receive Date: 20210108
  Receipt Date: 20210108
  Transmission Date: 20210419
  Serious: No
  Sender: FDA-Public Use
  Company Number: None

PATIENT
  Sex: Female

DRUGS (1)
  1. ELURYNG [Suspect]
     Active Substance: ETHINYL ESTRADIOL\ETONOGESTREL

REACTIONS (9)
  - Nausea [None]
  - Night sweats [None]
  - Loss of libido [None]
  - Product substitution issue [None]
  - Fatigue [None]
  - Vulvovaginal pain [None]
  - Mood swings [None]
  - Anxiety [None]
  - Weight increased [None]
